FAERS Safety Report 9589383 (Version 1)
Quarter: 2013Q4

REPORT INFORMATION
  Report Type: Spontaneous
  Country: US (occurrence: US)
  Receive Date: 20131003
  Receipt Date: 20131003
  Transmission Date: 20140711
  Serious: Yes (Hospitalization)
  Sender: FDA-Public Use
  Company Number: US-B.I. PHARMACEUTICALS,INC./RIDGEFIELD-2013-BI-30575BP

PATIENT
  Age: 83 Year
  Sex: Male
  Weight: 82 kg

DRUGS (7)
  1. PRADAXA [Suspect]
     Indication: ATRIAL FIBRILLATION
     Dosage: 300 MG
     Route: 048
     Dates: end: 20120423
  2. PRADAXA [Suspect]
     Dosage: 300 MG
     Route: 048
     Dates: start: 201209, end: 201210
  3. PRADAXA [Suspect]
     Dosage: 300 MG
     Route: 048
     Dates: start: 201309
  4. ASPIRIN [Suspect]
     Dates: end: 201309
  5. AVODART [Concomitant]
     Indication: BENIGN PROSTATIC HYPERPLASIA
     Dosage: 0.5 MG
     Route: 048
  6. PEPCID [Concomitant]
     Indication: GASTROOESOPHAGEAL REFLUX DISEASE
     Dosage: 20 MG
     Route: 048
     Dates: start: 201309
  7. VITAMIN D3 [Concomitant]
     Indication: VITAMIN D DECREASED
     Route: 048
     Dates: start: 2012

REACTIONS (1)
  - Cerebrovascular accident [Recovered/Resolved]
